FAERS Safety Report 9286785 (Version 2)
Quarter: 2013Q2

REPORT INFORMATION
  Report Type: Spontaneous
  Country: IT (occurrence: IT)
  Receive Date: 20130513
  Receipt Date: 20130620
  Transmission Date: 20140414
  Serious: Yes (Other)
  Sender: FDA-Public Use
  Company Number: IT-TEVA-403044ISR

PATIENT
  Age: 70 Year
  Sex: Female

DRUGS (7)
  1. FLUOROURACILE TEVA [Suspect]
     Indication: COLON CANCER
     Dosage: 612 MILLIGRAM DAILY; 612 MG CYCLICAL
     Route: 042
     Dates: start: 20120927, end: 20121121
  2. FLUOROURACILE TEVA [Suspect]
     Dosage: 918 MILLIGRAM DAILY; 918 MG CYCLICAL
     Route: 042
     Dates: start: 20120927, end: 20121121
  3. ERBITUX [Suspect]
     Indication: COLON CANCER
     Dosage: 382,5 MG CYCLICAL
     Route: 042
     Dates: start: 20120918, end: 20121121
  4. OXALIPLATINO HOSPIRA [Suspect]
     Indication: COLON CANCER
     Dosage: 130,1 MG CYCLICAL
     Route: 042
     Dates: start: 20120927, end: 20121121
  5. SOLDESAM [Concomitant]
     Dosage: 8 MG
     Route: 042
     Dates: start: 20120927, end: 20121121
  6. RANIDIL [Concomitant]
     Dosage: 50 MG
     Route: 042
     Dates: start: 20120927, end: 20121121
  7. ONDANSETRONE HIKMA [Concomitant]
     Indication: PROPHYLAXIS OF NAUSEA AND VOMITING
     Dosage: 8 MG
     Route: 042
     Dates: start: 20120927, end: 20121121

REACTIONS (9)
  - Abdominal pain [Recovering/Resolving]
  - Vertigo [Recovering/Resolving]
  - Formication [Recovering/Resolving]
  - Fatigue [Recovering/Resolving]
  - Pruritus [Recovering/Resolving]
  - Nausea [Recovering/Resolving]
  - Vomiting [Recovering/Resolving]
  - Flushing [Recovering/Resolving]
  - Dry skin [Recovering/Resolving]
